FAERS Safety Report 6104656-7 (Version None)
Quarter: 2009Q1

REPORT INFORMATION
  Report Type: 
  Country: None (occurrence: None)
  Receive Date: 20090303
  Receipt Date: 20090219
  Transmission Date: 20090719
  Serious: Yes (Hospitalization)
  Sender: FDA-Public Use
  Company Number: US025490

PATIENT
  Age: 63 Year
  Sex: Female
  Weight: 64.41 kg

DRUGS (6)
  1. ARSENIC TRIOXIDE [Suspect]
     Indication: ACUTE MYELOID LEUKAEMIA
     Dosage: 15.9 MG QD INTRAVENOUS
     Route: 042
     Dates: start: 20090216
  2. ARA-C [Suspect]
     Indication: ACUTE MYELOID LEUKAEMIA
  3. PANTOPRAZOLE SODIUM [Concomitant]
  4. METFORMIN HCL [Concomitant]
  5. ENALAPRIL [Concomitant]
  6. CIPROFLOXACIN [Concomitant]

REACTIONS (4)
  - ABDOMINAL PAIN UPPER [None]
  - DEHYDRATION [None]
  - NAUSEA [None]
  - VOMITING [None]
